FAERS Safety Report 13071858 (Version 1)
Quarter: 2016Q4

REPORT INFORMATION
  Report Type: Spontaneous
  Country: IN (occurrence: US)
  Receive Date: 20161229
  Receipt Date: 20161229
  Transmission Date: 20170207
  Serious: No
  Sender: FDA-Public Use
  Company Number: IN-BAYER-2016-246289

PATIENT
  Age: 73 Year
  Sex: Female

DRUGS (1)
  1. CLIMARA [Suspect]
     Active Substance: ESTRADIOL
     Indication: HORMONE REPLACEMENT THERAPY
     Dosage: 0.1 MG
     Route: 062
     Dates: start: 2016

REACTIONS (3)
  - Drug administration error [Recovering/Resolving]
  - Breast tenderness [Not Recovered/Not Resolved]
  - Product adhesion issue [None]

NARRATIVE: CASE EVENT DATE: 2016
